FAERS Safety Report 11129594 (Version 1)
Quarter: 2015Q2

REPORT INFORMATION
  Report Type: Spontaneous
  Country: ES (occurrence: ES)
  Receive Date: 20150521
  Receipt Date: 20150521
  Transmission Date: 20150821
  Serious: Yes (Hospitalization)
  Sender: FDA-Public Use
  Company Number: ES-GE HEALTHCARE MEDICAL DIAGNOSTICS-VISP-E2B_00000123

PATIENT
  Age: 61 Year
  Sex: Male

DRUGS (7)
  1. VISIPAQUE [Suspect]
     Active Substance: IODIXANOL
     Indication: THERAPEUTIC PROCEDURE
  2. VISIPAQUE [Suspect]
     Active Substance: IODIXANOL
     Indication: PERCUTANEOUS CORONARY INTERVENTION
     Route: 042
     Dates: start: 20140808, end: 20140808
  3. ENALAPRIL [Concomitant]
     Active Substance: ENALAPRIL
     Indication: ACUTE MYOCARDIAL INFARCTION
     Route: 048
     Dates: start: 20140808, end: 20140809
  4. BISOPROLOL [Concomitant]
     Active Substance: BISOPROLOL
     Indication: ACUTE MYOCARDIAL INFARCTION
     Route: 048
     Dates: start: 20140808
  5. ANGIOX [Suspect]
     Active Substance: BIVALIRUDIN
     Indication: PERCUTANEOUS CORONARY INTERVENTION
     Route: 042
     Dates: start: 20140808, end: 20140808
  6. PRASUGREL [Concomitant]
     Active Substance: PRASUGREL
     Indication: ACUTE MYOCARDIAL INFARCTION
     Route: 048
     Dates: start: 20140808
  7. EPLERENONA [Concomitant]
     Indication: ACUTE MYOCARDIAL INFARCTION
     Route: 048
     Dates: start: 20140808

REACTIONS (2)
  - Acute kidney injury [Recovered/Resolved]
  - Rash pruritic [Recovered/Resolved]

NARRATIVE: CASE EVENT DATE: 20140808
